FAERS Safety Report 6400985-8 (Version None)
Quarter: 2009Q4

REPORT INFORMATION
  Report Type: 
  Country: None (occurrence: None)
  Receive Date: 20091015
  Receipt Date: 20091007
  Transmission Date: 20100525
  Serious: Yes (Hospitalization)
  Sender: FDA-Public Use
  Company Number: US-BIOGENIDEC-2009BI030305

PATIENT
  Age: 52 Year
  Sex: Male
  Weight: 69 kg

DRUGS (9)
  1. TYSABRI [Suspect]
     Indication: MULTIPLE SCLEROSIS
     Route: 042
     Dates: start: 20090204
  2. HYDROCHLOROTHIAZIDE [Concomitant]
     Route: 048
  3. TRAMADOL HCL [Concomitant]
     Route: 048
  4. FLUOXETINE [Concomitant]
     Route: 048
  5. BACLOFEN [Concomitant]
     Route: 048
  6. PEPCID AC [Concomitant]
     Route: 048
  7. MULTI-VITAMINS [Concomitant]
     Route: 048
  8. EXCEDRINE MIGRAINE [Concomitant]
     Route: 048
  9. PROPOXYPHENE HCL CAP [Concomitant]
     Route: 048

REACTIONS (1)
  - ENCEPHALOPATHY [None]
